FAERS Safety Report 24529398 (Version 2)
Quarter: 2024Q4

REPORT INFORMATION
  Report Type: Spontaneous
  Country: US (occurrence: US)
  Receive Date: 20241021
  Receipt Date: 20241024
  Transmission Date: 20250114
  Serious: No
  Sender: Haleon PLC
  Company Number: US-HALEON-2201911

PATIENT
  Sex: Female

DRUGS (2)
  1. SENSODYNE PRONAMEL ACTIVE SHIELD COOL MINT [Suspect]
     Active Substance: POTASSIUM NITRATE\SODIUM FLUORIDE
     Indication: Dental cleaning
     Dosage: EXPDATE:202511
     Dates: start: 20240806, end: 20241001
  2. SENSODYNE PRONAMEL ACTIVE SHIELD COOL MINT [Suspect]
     Active Substance: POTASSIUM NITRATE\SODIUM FLUORIDE
     Dosage: EXPDATE: 2025-06
     Dates: start: 20240806, end: 20241001

REACTIONS (5)
  - Gingival bleeding [Recovering/Resolving]
  - Gingival discomfort [Recovering/Resolving]
  - Aphthous ulcer [Not Recovered/Not Resolved]
  - Tooth disorder [Recovering/Resolving]
  - Product use issue [Unknown]
